FAERS Safety Report 5463215-X (Version None)
Quarter: 2007Q3

REPORT INFORMATION
  Report Type: 
  Country: None (occurrence: None)
  Receive Date: 20070920
  Receipt Date: 20070918
  Transmission Date: 20080115
  Serious: Yes (Hospitalization, Other)
  Sender: FDA-Public Use
  Company Number: B0482546A

PATIENT
  Age: 50 Year
  Sex: Male

DRUGS (5)
  1. AMOXICILLIN TRIHYDRATE [Suspect]
     Indication: DUODENAL ULCER
     Dosage: 750MG TWICE PER DAY
     Route: 048
     Dates: start: 20070722, end: 20070722
  2. OMEPRAZOLE [Suspect]
     Indication: DUODENAL ULCER
     Dosage: 20MG TWICE PER DAY
     Route: 048
     Dates: start: 20070722, end: 20070722
  3. CLARITHROMYCIN [Suspect]
     Indication: DUODENAL ULCER
     Dosage: 400MG TWICE PER DAY
     Route: 048
     Dates: start: 20070722, end: 20070722
  4. GRIMAC [Concomitant]
     Indication: DUODENAL ULCER
     Dosage: .5G THREE TIMES PER DAY
     Route: 048
     Dates: start: 20070722, end: 20070722
  5. ALUSA [Concomitant]
     Indication: DUODENAL ULCER
     Dosage: 100MG THREE TIMES PER DAY
     Route: 048
     Dates: start: 20070722, end: 20070722

REACTIONS (3)
  - DRUG ERUPTION [None]
  - ERYTHEMA [None]
  - RASH ERYTHEMATOUS [None]
